FAERS Safety Report 4775120-2 (Version None)
Quarter: 2005Q3

REPORT INFORMATION
  Report Type: 
  Country: None (occurrence: None)
  Receive Date: 20050920
  Receipt Date: 20050907
  Transmission Date: 20060218
  Serious: Yes (Other)
  Sender: FDA-Public Use
  Company Number: 2005125388

PATIENT
  Age: 55 Year
  Sex: Female
  Weight: 72.5755 kg

DRUGS (2)
  1. LOPID [Suspect]
     Indication: LIPIDS
     Dosage: 1200 MG (600 MG, 2 IN 1 D)
     Dates: end: 20050101
  2. ALTACE [Concomitant]

REACTIONS (6)
  - ANAEMIA [None]
  - BLOOD TEST ABNORMAL [None]
  - MYALGIA [None]
  - MYOSITIS [None]
  - SURGERY [None]
  - WHITE BLOOD CELL DISORDER [None]
